FAERS Safety Report 17418667 (Version 6)
Quarter: 2020Q4

REPORT INFORMATION
  Report Type: Spontaneous
  Country: CA (occurrence: CA)
  Receive Date: 20200214
  Receipt Date: 20201110
  Transmission Date: 20210113
  Serious: Yes (Other)
  Sender: FDA-Public Use
  Company Number: CA-ORION CORPORATION ORION PHARMA-TREX2020-0452

PATIENT
  Age: 69 Year
  Sex: Female

DRUGS (18)
  1. METHOTREXATE (TRADE NAME UNKNOWN) [Suspect]
     Active Substance: METHOTREXATE
     Dosage: ON THURSDAYS
     Route: 048
  2. METHOTREXATE (TRADE NAME UNKNOWN) [Suspect]
     Active Substance: METHOTREXATE
     Route: 065
  3. XELJANZ [Suspect]
     Active Substance: TOFACITINIB CITRATE
     Indication: RHEUMATOID ARTHRITIS
     Route: 048
     Dates: start: 201912
  4. CARBOCAL D [Concomitant]
     Active Substance: CALCIUM\VITAMIN D
     Route: 065
  5. SPIRIVA [Concomitant]
     Active Substance: TIOTROPIUM BROMIDE MONOHYDRATE
     Route: 065
  6. FOLIC ACID. [Concomitant]
     Active Substance: FOLIC ACID
     Dosage: WEEKLY ON FRIDAY
     Route: 065
  7. PNEUMOCOCCAL VACCINE POLYVALENT NOS [Concomitant]
     Active Substance: PNEUMOCOCCAL VACCINE POLYVALENT
     Route: 065
  8. NAPROSYNE [Concomitant]
     Active Substance: NAPROXEN
     Route: 065
  9. METHOTREXATE (TRADE NAME UNKNOWN) [Suspect]
     Active Substance: METHOTREXATE
     Route: 048
  10. SINGULAIR [Concomitant]
     Active Substance: MONTELUKAST SODIUM
     Route: 065
  11. METHOTREXATE (TRADE NAME UNKNOWN) [Suspect]
     Active Substance: METHOTREXATE
     Indication: RHEUMATOID ARTHRITIS
     Route: 048
     Dates: start: 201902, end: 20191106
  12. TYLENOL A [Concomitant]
     Active Substance: ACETAMINOPHEN
     Route: 065
  13. PLAQUENIL S [Concomitant]
     Active Substance: HYDROXYCHLOROQUINE SULFATE
     Dosage: 400/200 MG
     Route: 048
     Dates: start: 20190613
  14. METHOTREXATE (TRADE NAME UNKNOWN) [Suspect]
     Active Substance: METHOTREXATE
     Route: 048
  15. MORPHINE SULFATE. [Suspect]
     Active Substance: MORPHINE SULFATE
     Indication: PRODUCT USED FOR UNKNOWN INDICATION
     Dosage: AS NEEDED
     Route: 065
  16. SYMBICORT [Concomitant]
     Active Substance: BUDESONIDE\FORMOTEROL FUMARATE DIHYDRATE
     Route: 065
  17. SHINGRIX [Concomitant]
     Active Substance: RECOMBINANT VARICELLA ZOSTER VIRUS (VZV) GLYCOPROTEIN E
     Route: 065
  18. SHINGRIX [Concomitant]
     Active Substance: RECOMBINANT VARICELLA ZOSTER VIRUS (VZV) GLYCOPROTEIN E
     Dosage: SECOND DOSE
     Route: 065
     Dates: start: 20200206

REACTIONS (18)
  - Malaise [Recovering/Resolving]
  - Nasopharyngitis [Unknown]
  - Gastrointestinal disorder [Recovered/Resolved]
  - Chronic obstructive pulmonary disease [Recovering/Resolving]
  - Arthralgia [Unknown]
  - Pneumonia [Unknown]
  - Fatigue [Recovering/Resolving]
  - Laziness [Recovering/Resolving]
  - Bronchitis [Recovering/Resolving]
  - Grip strength decreased [Not Recovered/Not Resolved]
  - Gait disturbance [Unknown]
  - Therapeutic product effect incomplete [Unknown]
  - Peripheral swelling [Recovering/Resolving]
  - Nausea [Recovered/Resolved]
  - Liver disorder [Unknown]
  - Fine motor skill dysfunction [Not Recovered/Not Resolved]
  - Weight increased [Unknown]
  - Back pain [Unknown]

NARRATIVE: CASE EVENT DATE: 2019
